FAERS Safety Report 8720212 (Version 2)
Quarter: 2016Q4

REPORT INFORMATION
  Report Type: Spontaneous
  Country: KR (occurrence: KR)
  Receive Date: 20120813
  Receipt Date: 20161005
  Transmission Date: 20170207
  Serious: Yes (Death)
  Sender: FDA-Public Use
  Company Number: KR-BAXTER-2012BAX013917

PATIENT
  Age: 46 Year
  Sex: Female

DRUGS (9)
  1. PACLITAXEL. [Concomitant]
     Active Substance: PACLITAXEL
     Indication: OVARIAN EPITHELIAL CANCER RECURRENT
     Route: 065
  2. CARBOPLATIN. [Concomitant]
     Active Substance: CARBOPLATIN
     Indication: OVARIAN EPITHELIAL CANCER RECURRENT
     Route: 065
  3. HOLOXAN 1000MG INJ (IFOSFAMIDE) [Suspect]
     Active Substance: IFOSFAMIDE
     Indication: OVARIAN EPITHELIAL CANCER RECURRENT
     Route: 042
  4. MESNA. [Concomitant]
     Active Substance: MESNA
     Indication: OVARIAN EPITHELIAL CANCER RECURRENT
     Route: 065
  5. CISPLATIN. [Concomitant]
     Active Substance: CISPLATIN
     Indication: OVARIAN EPITHELIAL CANCER RECURRENT
     Route: 065
  6. DOCETAXEL. [Concomitant]
     Active Substance: DOCETAXEL
     Indication: OVARIAN EPITHELIAL CANCER RECURRENT
     Route: 065
  7. ETOPOSIDE. [Concomitant]
     Active Substance: ETOPOSIDE
     Indication: OVARIAN EPITHELIAL CANCER RECURRENT
     Route: 042
  8. CARBOPLATIN. [Concomitant]
     Active Substance: CARBOPLATIN
     Route: 065
  9. TOPOTECAN [Concomitant]
     Active Substance: TOPOTECAN HYDROCHLORIDE
     Indication: OVARIAN EPITHELIAL CANCER RECURRENT
     Route: 065

REACTIONS (1)
  - Metabolic encephalopathy [Fatal]
